FAERS Safety Report 24672585 (Version 1)
Quarter: 2024Q4

REPORT INFORMATION
  Report Type: Spontaneous
  Country: US (occurrence: US)
  Receive Date: 20241127
  Receipt Date: 20241127
  Transmission Date: 20250114
  Serious: No
  Sender: SANOFI AVENTIS
  Company Number: US-SA-2024SA346654

PATIENT
  Age: 56 Year
  Sex: Male

DRUGS (24)
  1. DUPIXENT [Suspect]
     Active Substance: DUPILUMAB
     Indication: Chronic sinusitis
     Dosage: 300 MG, QOW
     Route: 058
     Dates: start: 202409
  2. ANASTROZOLE [Concomitant]
     Active Substance: ANASTROZOLE
  3. CHLORHEXIDINE [Concomitant]
     Active Substance: CHLORHEXIDINE
  4. CIPROFLOXACIN [Concomitant]
     Active Substance: CIPROFLOXACIN
  5. CLOBETASOL PROPIONATE [Concomitant]
     Active Substance: CLOBETASOL PROPIONATE
  6. CLONAZEPAM [Concomitant]
     Active Substance: CLONAZEPAM
  7. DIAZEPAM [Concomitant]
     Active Substance: DIAZEPAM
  8. DICLOFENAC SODIUM [Concomitant]
     Active Substance: DICLOFENAC SODIUM
  9. EMGALITY [Concomitant]
     Active Substance: GALCANEZUMAB-GNLM
  10. ESCITALOPRAM [Concomitant]
     Active Substance: ESCITALOPRAM OXALATE
  11. FENOFIBRATE [Concomitant]
     Active Substance: FENOFIBRATE
  12. GABAPENTIN [Concomitant]
     Active Substance: GABAPENTIN
  13. GEMFIBROZIL [Concomitant]
     Active Substance: GEMFIBROZIL
  14. KETOCONAZOLE [Concomitant]
     Active Substance: KETOCONAZOLE
  15. LISINOPRIL [Concomitant]
     Active Substance: LISINOPRIL
  16. METHOTREXATE [Concomitant]
     Active Substance: METHOTREXATE
  17. MITIGARE [Concomitant]
     Active Substance: COLCHICINE
  18. OLANZAPINE [Concomitant]
     Active Substance: OLANZAPINE
  19. ONDANSETRON [Concomitant]
     Active Substance: ONDANSETRON
  20. PREDNISONE [Concomitant]
     Active Substance: PREDNISONE
  21. ROSUVASTATIN [Concomitant]
     Active Substance: ROSUVASTATIN
  22. TAMSULOSIN HYDROCHLORIDE [Concomitant]
     Active Substance: TAMSULOSIN HYDROCHLORIDE
  23. TESTOSTERONE [Concomitant]
     Active Substance: TESTOSTERONE
  24. TIZANIDINE HYDROCHLORIDE [Concomitant]
     Active Substance: TIZANIDINE HYDROCHLORIDE

REACTIONS (4)
  - Injection site pain [Not Recovered/Not Resolved]
  - Product preparation error [Unknown]
  - Arthralgia [Not Recovered/Not Resolved]
  - Product use in unapproved indication [Unknown]

NARRATIVE: CASE EVENT DATE: 20240101
